FAERS Safety Report 21696766 (Version 1)
Quarter: 2022Q4

REPORT INFORMATION
  Report Type: Spontaneous
  Country: CN (occurrence: CN)
  Receive Date: 20221207
  Receipt Date: 20221207
  Transmission Date: 20230112
  Serious: Yes (Hospitalization)
  Sender: FDA-Public Use
  Company Number: CN-ABBVIE-4206490

PATIENT
  Age: 58 Year
  Sex: Female
  Weight: 60.327 kg

DRUGS (7)
  1. BIAXIN [Suspect]
     Active Substance: CLARITHROMYCIN
     Indication: Chronic gastritis
     Route: 048
     Dates: start: 20220505, end: 20220518
  2. ILAPRAZOLE [Concomitant]
     Active Substance: ILAPRAZOLE
     Indication: Chronic gastritis
     Dates: start: 20220505, end: 20220518
  3. SASANLIMAB [Suspect]
     Active Substance: SASANLIMAB
     Indication: Bladder neoplasm
     Route: 058
     Dates: start: 20210817, end: 20220622
  4. LEVOFLOXACIN LACTATE [Concomitant]
     Active Substance: LEVOFLOXACIN LACTATE
     Indication: Product used for unknown indication
     Route: 048
     Dates: start: 20220505, end: 20220518
  5. BISMUTH SUBCITRATE [Suspect]
     Active Substance: BISMUTH SUBCITRATE
     Indication: Chronic gastritis
     Route: 048
     Dates: start: 20220505, end: 20220518
  6. LEVOTHYROXINE SODIUM [Concomitant]
     Active Substance: LEVOTHYROXINE SODIUM
     Indication: Hypothyroidism
     Route: 048
     Dates: start: 20220428
  7. BCG VACCINE [Suspect]
     Active Substance: BCG VACCINE
     Indication: Bladder neoplasm
     Route: 065
     Dates: start: 20210817, end: 20210922

REACTIONS (5)
  - Drug eruption [Recovered/Resolved]
  - Chronic gastritis [Unknown]
  - Feeding disorder [Unknown]
  - Rash [Unknown]
  - Vomiting [Unknown]

NARRATIVE: CASE EVENT DATE: 20220501
